FAERS Safety Report 9168951 (Version 1)
Quarter: 2013Q1

REPORT INFORMATION
  Report Type: Spontaneous
  Country: FR (occurrence: FR)
  Receive Date: 20130318
  Receipt Date: 20130318
  Transmission Date: 20140127
  Serious: Yes (Other)
  Sender: FDA-Public Use
  Company Number: FR-PFIZER INC-2013085547

PATIENT
  Sex: Male

DRUGS (8)
  1. NEURONTIN [Suspect]
     Dosage: 800 MG AT 5 PM AND 2400 MG AT BEDTIME
     Route: 048
     Dates: start: 2007, end: 20080926
  2. ANDROGEL [Suspect]
     Indication: LIBIDO DISORDER
     Dosage: 100 MG, 1X/DAY
     Route: 048
     Dates: start: 20080925, end: 20080925
  3. SERESTA [Suspect]
     Indication: DEPRESSION
     Dosage: 100 MG PER DAY
     Route: 048
     Dates: start: 2007, end: 20080926
  4. RIVOTRIL [Suspect]
     Indication: DEPRESSION
     Dosage: 4 MG PER DAY
     Route: 048
     Dates: start: 2007, end: 20080926
  5. VIAGRA [Concomitant]
     Indication: ERECTILE DYSFUNCTION
     Dosage: 100 MG
     Route: 048
     Dates: start: 20120925
  6. MUSE [Concomitant]
     Indication: ERECTILE DYSFUNCTION
     Dosage: 1000 ?G
     Route: 066
     Dates: start: 20120925
  7. ATARAX [Concomitant]
     Indication: ANXIETY
     Dosage: 200 MG PER DAY
     Route: 048
     Dates: start: 2007, end: 20080926
  8. PARACETAMOL [Concomitant]
     Indication: PAIN
     Dosage: 1 G, 3X/DAY
     Route: 048
     Dates: start: 2007, end: 20080926

REACTIONS (3)
  - Anterograde amnesia [Recovered/Resolved]
  - Confusional state [Recovered/Resolved]
  - Aggression [Recovered/Resolved]
